FAERS Safety Report 24102991 (Version 1)
Quarter: 2024Q3

REPORT INFORMATION
  Report Type: Spontaneous
  Country: GB (occurrence: GB)
  Receive Date: 20240717
  Receipt Date: 20240717
  Transmission Date: 20241017
  Serious: Yes (Other)
  Sender: TEVA
  Company Number: None

PATIENT
  Age: 64 Year
  Sex: Male

DRUGS (1)
  1. DEXAMETHASONE [Suspect]
     Active Substance: DEXAMETHASONE
     Indication: Decreased appetite
     Dosage: 4MG OM
     Route: 065

REACTIONS (2)
  - Agitation [Recovering/Resolving]
  - Blood ketone body [Recovering/Resolving]

NARRATIVE: CASE EVENT DATE: 20240601
